FAERS Safety Report 5345402-4 (Version None)
Quarter: 2007Q2

REPORT INFORMATION
  Report Type: 
  Country: None (occurrence: None)
  Receive Date: 20070605
  Receipt Date: 20070530
  Transmission Date: 20071010
  Serious: Yes (Death)
  Sender: FDA-Public Use
  Company Number: GR-RB-006551-07

PATIENT
  Age: 49 Year
  Sex: Male

DRUGS (3)
  1. SUBUTEX [Suspect]
     Route: 060
     Dates: start: 20040816, end: 20070515
  2. CORTISONE ACETATE [Concomitant]
     Indication: DRUG USE FOR UNKNOWN INDICATION
     Dosage: DOSAGE UNKNOWN
     Route: 065
  3. ENTACT [Concomitant]
     Indication: DRUG USE FOR UNKNOWN INDICATION
     Dosage: DOSAGE UNKNOWN
     Route: 065

REACTIONS (1)
  - CARDIAC ARREST [None]
